FAERS Safety Report 7211446-0 (Version None)
Quarter: 2010Q4

REPORT INFORMATION
  Report Type: 
  Country: None (occurrence: None)
  Receive Date: 20101223
  Receipt Date: 20101209
  Transmission Date: 20110411
  Serious: Yes (Hospitalization)
  Sender: FDA-Public Use
  Company Number: 023440

PATIENT
  Sex: Male

DRUGS (8)
  1. CIMZIA [Suspect]
     Indication: RHEUMATOID ARTHRITIS
     Dosage: (200 MG 1X/2 WEEKS SUBCUTANEOUS)
     Route: 058
     Dates: start: 20091015
  2. PREDNISOLONE [Suspect]
     Indication: RHEUMATOID ARTHRITIS
     Dosage: (3.5 MG ORAL)
     Route: 048
     Dates: start: 20101109
  3. MOBIC [Suspect]
     Indication: RHEUMATOID ARTHRITIS
     Dosage: (15 MG, 10MG AND 5 MG ORAL)
     Route: 048
     Dates: start: 20060427
  4. SALAZOSULFAPYRIDINE (SALAZOSULFAPYRIDINE ) [Suspect]
     Indication: RHEUMATOID ARTHRITIS
     Dosage: (500 MG ORAL)
     Route: 048
     Dates: start: 20070821
  5. PELEX /00413001/ (PELEX (NON-PYRINE COLD PREPARATION)) (NOT SPECIFIED) [Suspect]
     Indication: NASOPHARYNGITIS
     Dosage: (3 MG ORAL)
     Route: 048
     Dates: start: 20101126
  6. KETOPROFEN [Concomitant]
  7. FAMOTIDINE [Concomitant]
  8. PREDNISOLONE [Concomitant]

REACTIONS (2)
  - NASOPHARYNGITIS [None]
  - UPPER GASTROINTESTINAL HAEMORRHAGE [None]
